FAERS Safety Report 6106982-4 (Version None)
Quarter: 2009Q1

REPORT INFORMATION
  Report Type: 
  Country: None (occurrence: None)
  Receive Date: 20090309
  Receipt Date: 20090305
  Transmission Date: 20090719
  Serious: Yes (Death)
  Sender: FDA-Public Use
  Company Number: JP-JNJFOC-20081105263

PATIENT
  Sex: Male
  Weight: 55 kg

DRUGS (11)
  1. FENTANYL [Suspect]
     Route: 062
  2. FENTANYL [Suspect]
     Indication: GASTRIC CANCER
     Dosage: APPLIED FOR HALF AREA
     Route: 062
  3. MS CONTIN [Concomitant]
     Indication: GASTRIC CANCER
     Route: 048
  4. OPSO [Concomitant]
     Dosage: P.R.N.
     Route: 048
  5. FULCALIQ 2 [Concomitant]
     Indication: GASTRIC CANCER
     Route: 041
  6. LASIX [Concomitant]
     Indication: DIABETIC NEPHROPATHY
     Route: 042
  7. CHLORPROMAZINE [Concomitant]
     Route: 065
  8. HYDROXYZINE PAMOATE [Concomitant]
     Route: 065
  9. SERENACE [Concomitant]
     Route: 057
  10. FULCALIQ 3 [Concomitant]
     Indication: GASTRIC CANCER
     Route: 041
  11. HUMULIN R [Concomitant]
     Dosage: 10-28 LU/DAY
     Route: 058

REACTIONS (3)
  - DISEASE PROGRESSION [None]
  - RENAL FAILURE [None]
  - WRONG TECHNIQUE IN DRUG USAGE PROCESS [None]
